FAERS Safety Report 5164312-9 (Version None)
Quarter: 2006Q4

REPORT INFORMATION
  Report Type: 
  Country: None (occurrence: None)
  Receive Date: 20061127
  Receipt Date: 20061127
  Transmission Date: 20070319
  Serious: Yes (Life-Threatening, Disabling, Other)
  Sender: FDA-Public Use
  Company Number: None

PATIENT
  Age: 63 Year
  Sex: Male
  Weight: 61.2356 kg

DRUGS (2)
  1. AMIODARONE HCL [Suspect]
     Indication: HEART RATE DECREASED
     Dates: start: 20060920, end: 20061101
  2. AMIODARONE HCL [Concomitant]

REACTIONS (7)
  - ALOPECIA [None]
  - ATRIOVENTRICULAR BLOCK [None]
  - OPTIC NERVE DISORDER [None]
  - THYROID DISORDER [None]
  - URTICARIA [None]
  - VISUAL DISTURBANCE [None]
  - WEIGHT DECREASED [None]
